FAERS Safety Report 10692731 (Version 4)
Quarter: 2015Q2

REPORT INFORMATION
  Report Type: Report from Study
  Country: US (occurrence: US)
  Receive Date: 20150106
  Receipt Date: 20150609
  Transmission Date: 20150821
  Serious: Yes (Death, Hospitalization)
  Sender: FDA-Public Use
  Company Number: US-BAYER-2014-190717

PATIENT
  Age: 70 Year
  Sex: Female

DRUGS (1)
  1. STIVARGA [Suspect]
     Active Substance: REGORAFENIB
     Indication: COLON CANCER
     Dosage: 160MG,QD
     Route: 048
     Dates: start: 20141218

REACTIONS (5)
  - Death [Fatal]
  - Hospitalisation [Not Recovered/Not Resolved]
  - Fatigue [None]
  - Dysphonia [None]
  - Dry mouth [None]

NARRATIVE: CASE EVENT DATE: 20150105
